FAERS Safety Report 5578120-8 (Version None)
Quarter: 2007Q4

REPORT INFORMATION
  Report Type: 
  Country: None (occurrence: None)
  Receive Date: 20071227
  Receipt Date: 20071217
  Transmission Date: 20080405
  Serious: Yes (Hospitalization)
  Sender: FDA-Public Use
  Company Number: DSA_31080_2007

PATIENT
  Sex: Female

DRUGS (2)
  1. LORAZEPAM [Suspect]
     Dosage: (20 MG 1X . ORAL)
     Route: 048
     Dates: start: 20071215, end: 20071215
  2. VENLAFAXIINE HCL [Suspect]
     Dosage: (7500 MG 1X . ORAL)
     Route: 048
     Dates: start: 20071215, end: 20071215

REACTIONS (4)
  - FATIGUE [None]
  - GASTROINTESTINAL SOUNDS ABNORMAL [None]
  - INTENTIONAL OVERDOSE [None]
  - SUICIDE ATTEMPT [None]
